FAERS Safety Report 7985365-6 (Version None)
Quarter: 2011Q4

REPORT INFORMATION
  Report Type: 
  Country: None (occurrence: None)
  Receive Date: 20111216
  Receipt Date: 20111209
  Transmission Date: 20120403
  Serious: Yes (Other)
  Sender: FDA-Public Use
  Company Number: GB-JNJFOC-2011001564

PATIENT
  Age: 60 Year

DRUGS (8)
  1. CETIRIZINE HCL [Suspect]
     Route: 065
  2. ALLOPURINOL [Suspect]
     Indication: PRODUCT USED FOR UNKNOWN INDICATION
     Dosage: DAILY DOSE TEXT: 300MG ONCE DAILY
     Route: 065
  3. COLCHICINE [Suspect]
     Indication: PRODUCT USED FOR UNKNOWN INDICATION
     Dosage: DAILY DOSE TEXT: 1MG ONCE DAILY
     Route: 065
  4. METFORMIN HCL [Suspect]
     Indication: PRODUCT USED FOR UNKNOWN INDICATION
     Dosage: DAILY DOSE TEXT: 1500MG ONCE DAILY
     Route: 065
  5. MIRTAZAPINE [Suspect]
     Indication: DEPRESSION
     Dosage: DAILY DOSE TEXT: UNKNOWN
     Route: 065
  6. VALSARTAN [Suspect]
     Indication: PRODUCT USED FOR UNKNOWN INDICATION
     Dosage: DAILY DOSE TEXT: 120MG ONCE DAILY
     Route: 065
  7. CETIRIZINE HCL [Suspect]
     Indication: PRODUCT USED FOR UNKNOWN INDICATION
     Dosage: DAILY DOSE TEXT: 10MG ONCE DAILY
     Route: 065
  8. DOXAZOSIN MESYLATE [Suspect]
     Indication: PRODUCT USED FOR UNKNOWN INDICATION
     Dosage: DAILY DOSE TEXT: 4MG ONCE DAILY
     Route: 065

REACTIONS (1)
  - PANCREATITIS ACUTE [None]
